FAERS Safety Report 8192558-4 (Version None)
Quarter: 2012Q1

REPORT INFORMATION
  Report Type: 
  Country: None (occurrence: None)
  Receive Date: 20120308
  Receipt Date: 20120302
  Transmission Date: 20120608
  Serious: No
  Sender: FDA-Public Use
  Company Number: US-BIOGENIDEC-2012BI007810

PATIENT
  Age: 56 Year
  Sex: Male

DRUGS (4)
  1. AVONEX [Suspect]
     Indication: MULTIPLE SCLEROSIS
     Route: 030
     Dates: start: 20010309
  2. AVONEX [Suspect]
     Route: 030
     Dates: end: 20090501
  3. AVONEX [Suspect]
     Route: 030
     Dates: start: 20090717
  4. TYSABRI [Concomitant]
     Indication: MULTIPLE SCLEROSIS
     Route: 042
     Dates: start: 20070423, end: 20090501

REACTIONS (2)
  - STAPHYLOCOCCAL SKIN INFECTION [None]
  - CELLULITIS [None]
